FAERS Safety Report 8547366-9 (Version None)
Quarter: 2012Q3

REPORT INFORMATION
  Report Type: 
  Country: None (occurrence: None)
  Receive Date: 20120727
  Receipt Date: 20120322
  Transmission Date: 20120928
  Serious: No
  Sender: FDA-Public Use
  Company Number: US-ASTRAZENECA-2012SE19795

PATIENT
  Age: 58 Year
  Sex: Female
  Weight: 52.2 kg

DRUGS (11)
  1. PANTOPRAZOLE [Concomitant]
  2. SEROQUEL XR [Suspect]
     Indication: ANXIETY
     Route: 048
     Dates: start: 20070101
  3. LITHIUM CARBONATE [Concomitant]
  4. PROMETRIUM [Concomitant]
  5. SEROQUEL XR [Suspect]
     Indication: MAJOR DEPRESSION
     Route: 048
     Dates: start: 20070101
  6. SEROQUEL XR [Suspect]
     Indication: BIPOLAR DISORDER
     Route: 048
     Dates: start: 20070101
  7. VIVELLE-DOT [Concomitant]
  8. SIMVASTATIN [Concomitant]
  9. PAROXETINE HCL [Concomitant]
  10. SYNTHROID [Concomitant]
  11. LAMOTRIGINE [Concomitant]

REACTIONS (6)
  - DRY THROAT [None]
  - REFLUX LARYNGITIS [None]
  - DYSPHAGIA [None]
  - SENSATION OF FOREIGN BODY [None]
  - THROAT IRRITATION [None]
  - SPEECH DISORDER [None]
